FAERS Safety Report 17098842 (Version 1)
Quarter: 2019Q4

REPORT INFORMATION
  Report Type: Spontaneous
  Country: US (occurrence: US)
  Receive Date: 20191105
  Receipt Date: 20191105
  Transmission Date: 20200122
  Serious: Yes (Hospitalization)
  Sender: FDA-Public Use
  Company Number: None

PATIENT
  Age: 86 Year
  Sex: Male

DRUGS (8)
  1. ESBRIET [Suspect]
     Active Substance: PIRFENIDONE
     Indication: IDIOPATHIC PULMONARY FIBROSIS
     Route: 048
     Dates: start: 20171111
  2. LEVOTHYROXINE. [Concomitant]
     Active Substance: LEVOTHYROXINE
  3. TOLTERODINE [Concomitant]
     Active Substance: TOLTERODINE
  4. FUROSEMIDE. [Concomitant]
     Active Substance: FUROSEMIDE
  5. VALSARTAN. [Concomitant]
     Active Substance: VALSARTAN
  6. TAMSULOSIN [Concomitant]
     Active Substance: TAMSULOSIN
  7. ESOMEPRAZOLE. [Concomitant]
     Active Substance: ESOMEPRAZOLE MAGNESIUM
  8. METOPROLOL. [Concomitant]
     Active Substance: METOPROLOL

REACTIONS (2)
  - Hospitalisation [None]
  - Therapy cessation [None]

NARRATIVE: CASE EVENT DATE: 201911
